FAERS Safety Report 13176971 (Version 1)
Quarter: 2017Q1

REPORT INFORMATION
  Report Type: Report from Study
  Country: US (occurrence: US)
  Receive Date: 20170201
  Receipt Date: 20170201
  Transmission Date: 20170428
  Serious: No
  Sender: FDA-Public Use
  Company Number: US-EXELIXIS-CABO-16006817

PATIENT
  Sex: Female
  Weight: 39.91 kg

DRUGS (1)
  1. COMETRIQ [Suspect]
     Active Substance: CABOZANTINIB S-MALATE
     Indication: RENAL CANCER
     Dosage: 60 MG, QD
     Route: 048
     Dates: start: 20160516

REACTIONS (10)
  - Fatigue [Unknown]
  - Hair colour changes [Unknown]
  - Weight decreased [Unknown]
  - Candida infection [Unknown]
  - Blister [Unknown]
  - Stomatitis [Not Recovered/Not Resolved]
  - Diarrhoea [Recovering/Resolving]
  - Night sweats [Unknown]
  - Decreased appetite [Recovering/Resolving]
  - Off label use [Unknown]
